FAERS Safety Report 25129349 (Version 1)
Quarter: 2025Q1

REPORT INFORMATION
  Report Type: Spontaneous
  Country: ES (occurrence: ES)
  Receive Date: 20250327
  Receipt Date: 20250327
  Transmission Date: 20250409
  Serious: Yes (Hospitalization)
  Sender: AUROBINDO
  Company Number: ES-AEMPS-1647130

PATIENT
  Age: 6 Month
  Sex: Female
  Weight: 7 kg

DRUGS (2)
  1. FLECAINIDE [Suspect]
     Active Substance: FLECAINIDE
     Indication: Supraventricular tachycardia
     Dosage: 12 MILLIGRAM, TWO TIMES A DAY
     Route: 048
     Dates: start: 20240915, end: 20250213
  2. PROPRANOLOL [Concomitant]
     Active Substance: PROPRANOLOL HYDROCHLORIDE
     Indication: Supraventricular tachycardia
     Dosage: 6 MILLIGRAM, 3 TIMES A DAY
     Route: 048
     Dates: start: 20240915

REACTIONS (1)
  - Bundle branch block right [Recovered/Resolved]

NARRATIVE: CASE EVENT DATE: 20250213
